FAERS Safety Report 4946242-8 (Version None)
Quarter: 2006Q1

REPORT INFORMATION
  Report Type: 
  Country: None (occurrence: None)
  Receive Date: 20060317
  Receipt Date: 20060308
  Transmission Date: 20060701
  Serious: Yes (Death, Hospitalization)
  Sender: FDA-Public Use
  Company Number: US-SANOFI-SYNTHELABO-A03200601285

PATIENT
  Sex: Male
  Weight: 82.54 kg

DRUGS (7)
  1. PLAVIX [Suspect]
     Indication: STENT PLACEMENT
     Dosage: UNK
     Route: 048
     Dates: start: 20040101
  2. GLUCOVANCE [Suspect]
     Indication: DIABETES MELLITUS
     Dosage: 12.5/250 MG/DAILY
     Route: 048
     Dates: start: 20040101
  3. ATENOLOL [Concomitant]
     Dosage: UNK
     Route: 048
     Dates: start: 19910101
  4. ALTACE [Concomitant]
     Dosage: UNK
     Route: 048
     Dates: start: 19910101
  5. ASPIRIN [Concomitant]
     Dosage: UNK
     Route: 048
     Dates: start: 19910101
  6. FOLIC ACID [Concomitant]
     Dosage: UNK
     Route: 048
     Dates: start: 19910101
  7. POTASSIUM CHLORIDE [Concomitant]
     Dosage: UNK
     Route: 048
     Dates: start: 19910101

REACTIONS (2)
  - ANEURYSM [None]
  - MYOCARDIAL INFARCTION [None]
